FAERS Safety Report 25176829 (Version 1)
Quarter: 2025Q2

REPORT INFORMATION
  Report Type: Spontaneous
  Country: DE (occurrence: DE)
  Receive Date: 20250409
  Receipt Date: 20250409
  Transmission Date: 20250716
  Serious: Yes (Hospitalization)
  Sender: BIOGEN
  Company Number: DE-BIOGEN-2025BI01306706

PATIENT
  Age: 27 Year
  Sex: Male
  Weight: 122.6 kg

DRUGS (1)
  1. TYSABRI [Suspect]
     Active Substance: NATALIZUMAB
     Indication: Multiple sclerosis
     Route: 050
     Dates: start: 202108

REACTIONS (1)
  - Sciatica [Recovered/Resolved]

NARRATIVE: CASE EVENT DATE: 20250327
